FAERS Safety Report 8073374-0 (Version None)
Quarter: 2012Q1

REPORT INFORMATION
  Report Type: 
  Country: None (occurrence: None)
  Receive Date: 20120126
  Receipt Date: 20120123
  Transmission Date: 20120608
  Serious: Yes (Hospitalization)
  Sender: FDA-Public Use
  Company Number: US-ACTELION-A-NJ2012-60225

PATIENT

DRUGS (5)
  1. COUMADIN [Concomitant]
  2. REVATIO [Concomitant]
  3. VENTAVIS [Suspect]
     Indication: PULMONARY ARTERIAL HYPERTENSION
     Dosage: UNK
     Route: 055
     Dates: start: 20080819, end: 20120116
  4. LASIX [Concomitant]
  5. SPIRONOLACTONE [Concomitant]

REACTIONS (3)
  - LIVER DISORDER [None]
  - RENAL DISORDER [None]
  - OESOPHAGEAL VARICES HAEMORRHAGE [None]
